FAERS Safety Report 7124785-9 (Version None)
Quarter: 2010Q4

REPORT INFORMATION
  Report Type: 
  Country: None (occurrence: None)
  Receive Date: 20101123
  Receipt Date: 20101123
  Transmission Date: 20110411
  Serious: Yes (Death, Life-Threatening, Hospitalization, Other)
  Sender: FDA-Public Use
  Company Number: None

PATIENT
  Sex: Male

DRUGS (3)
  1. NEXAVAR [Suspect]
     Indication: HEPATIC CANCER METASTATIC
     Dosage: 200 MG BID PO
     Route: 048
     Dates: start: 20100809, end: 20100825
  2. LANTUS [Concomitant]
  3. HUMALOG [Concomitant]

REACTIONS (5)
  - CACHEXIA [None]
  - GASTROINTESTINAL PERFORATION [None]
  - LOCALISED OEDEMA [None]
  - OEDEMA PERIPHERAL [None]
  - QUALITY OF LIFE DECREASED [None]
